FAERS Safety Report 21385885 (Version 1)
Quarter: 2022Q3

REPORT INFORMATION
  Report Type: Spontaneous
  Country: CN (occurrence: CN)
  Receive Date: 20220928
  Receipt Date: 20220928
  Transmission Date: 20221027
  Serious: Yes (Hospitalization)
  Sender: FDA-Public Use
  Company Number: CN-NOVARTISPH-NVSC2022CN218296

PATIENT
  Age: 21 Year
  Sex: Male
  Weight: 54 kg

DRUGS (1)
  1. CARBAMAZEPINE [Suspect]
     Active Substance: CARBAMAZEPINE
     Indication: Dizziness
     Dosage: 0.05 G, TID, FOR MORE THAN ONE YEAR IN NORMAL TIMES
     Route: 048
     Dates: start: 20220705, end: 20220706

REACTIONS (1)
  - Electrolyte imbalance [Unknown]

NARRATIVE: CASE EVENT DATE: 20220706
